FAERS Safety Report 16004630 (Version 1)
Quarter: 2019Q1

REPORT INFORMATION
  Report Type: Spontaneous
  Country: US (occurrence: US)
  Receive Date: 20190225
  Receipt Date: 20190225
  Transmission Date: 20190418
  Serious: No
  Sender: FDA-Public Use
  Company Number: None

PATIENT
  Age: 80 Year
  Sex: Male
  Weight: 76.5 kg

DRUGS (20)
  1. VIBERZI [Concomitant]
     Active Substance: ELUXADOLINE
  2. FOLIC ACID. [Concomitant]
     Active Substance: FOLIC ACID
  3. LIALDA [Concomitant]
     Active Substance: MESALAMINE
  4. DEXAMETHASONE. [Concomitant]
     Active Substance: DEXAMETHASONE
  5. FISH OIL [Concomitant]
     Active Substance: FISH OIL
  6. OXYBUTYNIN. [Concomitant]
     Active Substance: OXYBUTYNIN CHLORIDE
  7. ASPIRIN. [Concomitant]
     Active Substance: ASPIRIN
  8. FLOMAX [Concomitant]
     Active Substance: TAMSULOSIN HYDROCHLORIDE
  9. CITRUCEL [Concomitant]
     Active Substance: METHYLCELLULOSE (4000 MPA.S)
  10. ROPINIROLE. [Concomitant]
     Active Substance: ROPINIROLE
  11. LIPITOR [Concomitant]
     Active Substance: ATORVASTATIN CALCIUM
  12. LOSARTAN. [Concomitant]
     Active Substance: LOSARTAN
  13. OMEPRAZOLE DR 40 MG CAPSULE [Suspect]
     Active Substance: OMEPRAZOLE
     Indication: GASTROOESOPHAGEAL REFLUX DISEASE
     Dosage: ?          QUANTITY:1 CAPSULE(S);?
     Route: 048
     Dates: start: 20181107, end: 20181119
  14. REVLIMID [Concomitant]
     Active Substance: LENALIDOMIDE
  15. PROBIOTIC [Concomitant]
     Active Substance: PROBIOTICS NOS
  16. VESICARE [Concomitant]
     Active Substance: SOLIFENACIN SUCCINATE
  17. SPIRONOLACTONE. [Concomitant]
     Active Substance: SPIRONOLACTONE
  18. OMEPRAZOLE. [Concomitant]
     Active Substance: OMEPRAZOLE
  19. CENTRUM [Concomitant]
     Active Substance: VITAMINS
  20. CALTRATE [Concomitant]
     Active Substance: CALCIUM CARBONATE

REACTIONS (5)
  - Skin irritation [None]
  - Peripheral swelling [None]
  - Skin exfoliation [None]
  - Rash [None]
  - Product substitution issue [None]

NARRATIVE: CASE EVENT DATE: 20181108
